FAERS Safety Report 10030923 (Version 2)
Quarter: 2014Q1

REPORT INFORMATION
  Report Type: Spontaneous
  Country: US (occurrence: US)
  Receive Date: 20140323
  Receipt Date: 20140323
  Transmission Date: 20141002
  Serious: Yes (Disabling)
  Sender: FDA-Public Use
  Company Number: US-GE HEALTHCARE MEDICAL DIAGNOSTICS-OSCN-PR-0801S-0045

PATIENT
  Sex: Female

DRUGS (9)
  1. OMNISCAN [Suspect]
     Indication: HEADACHE
     Route: 042
     Dates: start: 20011106, end: 20011106
  2. OMNISCAN [Suspect]
     Indication: CONVULSION
     Route: 042
     Dates: start: 20020821, end: 20020821
  3. OMNISCAN [Suspect]
     Indication: POSTERIOR REVERSIBLE ENCEPHALOPATHY SYNDROME
     Route: 042
     Dates: start: 20020920, end: 20020920
  4. OMNISCAN [Suspect]
     Indication: ABSCESS
     Route: 042
     Dates: start: 20060305, end: 20060305
  5. GADOLINIUM (UNSPECIFIED) [Suspect]
     Indication: RENAL TRANSPLANT
     Route: 042
     Dates: start: 19960207, end: 19960207
  6. EPOGEN [Concomitant]
     Indication: PRODUCT USED FOR UNKNOWN INDICATION
  7. OKT-3 [Concomitant]
  8. TACROLIMUS [Concomitant]
  9. PREDNISONE [Concomitant]

REACTIONS (1)
  - Nephrogenic systemic fibrosis [Not Recovered/Not Resolved]
